FAERS Safety Report 18172819 (Version 3)
Quarter: 2020Q3

REPORT INFORMATION
  Report Type: Spontaneous
  Country: FR (occurrence: FR)
  Receive Date: 20200820
  Receipt Date: 20200917
  Transmission Date: 20201103
  Serious: Yes (Hospitalization)
  Sender: FDA-Public Use
  Company Number: FR-AUROBINDO-AUR-APL-2020-033584

PATIENT
  Age: 59 Year
  Sex: Female
  Weight: 49 kg

DRUGS (14)
  1. ZOPHREN [Suspect]
     Active Substance: ONDANSETRON
     Indication: PRODUCT USED FOR UNKNOWN INDICATION
     Dosage: 2 DOSAGE FORM, ONCE A DAY
     Route: 048
     Dates: start: 20200604
  2. RANITIDINE. [Suspect]
     Active Substance: RANITIDINE
     Dosage: 1 DOSAGE FORM, ONCE A DAY
     Route: 048
     Dates: start: 20200605, end: 20200606
  3. EMEND [Suspect]
     Active Substance: APREPITANT
     Indication: PRODUCT USED FOR UNKNOWN INDICATION
     Dosage: 1 DOSAGE FORM, ONCE A DAY
     Route: 048
     Dates: start: 20200605, end: 20200606
  4. PACLITAXEL. [Suspect]
     Active Substance: PACLITAXEL
     Indication: LUNG ADENOCARCINOMA
     Dosage: 266.5 MILLIGRAM, CYCLICAL
     Route: 042
     Dates: start: 20200603
  5. RANITIDINE. [Suspect]
     Active Substance: RANITIDINE
     Indication: LUNG ADENOCARCINOMA
     Dosage: 3 DOSAGE FORM, ONCE A DAY
     Route: 048
     Dates: start: 20200330
  6. RANITIDINE. [Suspect]
     Active Substance: RANITIDINE
     Indication: PRODUCT USED FOR UNKNOWN INDICATION
     Dosage: 200 MILLIGRAM, 1 TOTAL
     Route: 042
     Dates: start: 20200603, end: 20200603
  7. RANITIDINE. [Suspect]
     Active Substance: RANITIDINE
     Dosage: 2 DOSAGE FORM, ONCE A DAY
     Route: 048
     Dates: start: 20200604, end: 20200606
  8. POLARAMINE [Suspect]
     Active Substance: DEXCHLORPHENIRAMINE MALEATE
     Indication: CHEMOTHERAPY SIDE EFFECT PROPHYLAXIS
     Dosage: 5 MILLIGRAM, 1 TOTAL,SYRUP
     Route: 042
     Dates: start: 20200603
  9. CARBOPLATIN. [Suspect]
     Active Substance: CARBOPLATIN
     Indication: LUNG ADENOCARCINOMA
     Dosage: 580 MILLIGRAM, CYCLICAL
     Route: 042
     Dates: start: 20200603
  10. RANITIDINE. [Suspect]
     Active Substance: RANITIDINE
     Indication: CHEMOTHERAPY SIDE EFFECT PROPHYLAXIS
     Dosage: 200 MILLIGRAM, 1 TOTAL
     Route: 042
  11. RANITIDINE. [Suspect]
     Active Substance: RANITIDINE
     Indication: ORAL FUNGAL INFECTION
     Dosage: 580 MILLIGRAM
     Route: 042
     Dates: start: 20200603, end: 20200603
  12. PRIMPERAN [Suspect]
     Active Substance: METOCLOPRAMIDE HYDROCHLORIDE
     Indication: PRODUCT USED FOR UNKNOWN INDICATION
     Dosage: 3 DOSAGE FORM, ONCE A DAY
     Route: 048
     Dates: start: 20200330
  13. FLUCONAZOLE HARD CAPSULES [Suspect]
     Active Substance: FLUCONAZOLE
     Indication: ORAL FUNGAL INFECTION
     Dosage: 200 MILLIGRAM, ONCE A DAY
     Route: 048
     Dates: start: 20200604, end: 20200609
  14. RANITIDINE. [Suspect]
     Active Substance: RANITIDINE
     Dosage: 200 MILLIGRAM, ONCE A DAY
     Route: 048
     Dates: start: 20200604, end: 20200609

REACTIONS (4)
  - Rash maculo-papular [Recovered/Resolved]
  - Rash [Recovering/Resolving]
  - Pruritus [Recovered/Resolved]
  - Pyrexia [Recovered/Resolved]

NARRATIVE: CASE EVENT DATE: 20200606
